FAERS Safety Report 21987418 (Version 1)
Quarter: 2023Q1

REPORT INFORMATION
  Report Type: Spontaneous
  Country: GB (occurrence: GB)
  Receive Date: 20230214
  Receipt Date: 20230214
  Transmission Date: 20230417
  Serious: No
  Sender: FDA-Public Use
  Company Number: None

PATIENT
  Age: 70 Year
  Sex: Female
  Weight: 68 kg

DRUGS (27)
  1. CEPHALEXIN [Suspect]
     Active Substance: CEPHALEXIN
     Indication: Product used for unknown indication
     Dosage: 1000 MILLIGRAM, ONCE A DAY
     Route: 065
     Dates: start: 20220325, end: 20220401
  2. AMITRIPTYLINE HYDROCHLORIDE [Concomitant]
     Active Substance: AMITRIPTYLINE HYDROCHLORIDE
     Indication: Ill-defined disorder
     Dosage: TAKE 3 TABLETS DAILY FOR BACK PAIN (TOTAL DOSE..
     Route: 065
     Dates: start: 20220321
  3. ARIPIPRAZOLE [Concomitant]
     Active Substance: ARIPIPRAZOLE
     Indication: Ill-defined disorder
     Dosage: 2 TABLETS IN MORNING
     Route: 065
     Dates: start: 20211103
  4. ASPIRIN [Concomitant]
     Active Substance: ASPIRIN
     Indication: Ill-defined disorder
     Dosage: TAKE ONE DAILY AT 8AM FOR SECONDARY PREVENTION
     Route: 065
     Dates: start: 20211103
  5. BIMATOPROST [Concomitant]
     Active Substance: BIMATOPROST
     Indication: Ill-defined disorder
     Dosage: 1 DROP INTO BOTH EYES ONCE A DAY AT NIGHT FOR G..
     Route: 065
     Dates: start: 20211103
  6. BUNOV [Concomitant]
     Indication: Ill-defined disorder
     Dosage: APPLY ONE AS DIRECTED AND REPLACE EVERY 7 DAYS
     Route: 065
     Dates: start: 20220310, end: 20220407
  7. CHOLECALCIFEROL [Concomitant]
     Active Substance: CHOLECALCIFEROL
     Indication: Ill-defined disorder
     Dosage: ONE TO BE TAKEN DAILY AT 8AM
     Route: 065
     Dates: start: 20211103
  8. CYCLIZINE [Concomitant]
     Active Substance: CYCLIZINE
     Indication: Ill-defined disorder
     Dosage: TAKE ONE TABLET UP TO A MAXIMUM OF TWICE A DAY
     Route: 065
     Dates: start: 20211103
  9. ESTRIOL [Concomitant]
     Active Substance: ESTRIOL
     Indication: Ill-defined disorder
     Dosage: ONE APPLICATORFUL ONCE DAILY AT NIGHT FOR 3 WEEKS THEN REDUCE TO TWICE A WEEK
     Route: 065
     Dates: start: 20220523
  10. SODIUM HYALURONATE [Concomitant]
     Active Substance: HYALURONATE SODIUM
     Indication: Ill-defined disorder
     Dosage: USE WHEN REQUIRED FOR DRY EYES
     Route: 065
     Dates: start: 20211103
  11. FEXOFENADINE [Concomitant]
     Active Substance: FEXOFENADINE HYDROCHLORIDE
     Indication: Ill-defined disorder
     Dosage: ONE TO BE TAKEN DAILY AT 8AM
     Route: 065
     Dates: start: 20211103
  12. FLUDROCORTISONE [Concomitant]
     Active Substance: FLUDROCORTISONE
     Indication: Ill-defined disorder
     Dosage: TAKE ONE AND A HALF TABLETS (150MICROGRAMS) IN..
     Route: 065
     Dates: start: 20211103
  13. BUTYLSCOPOLAMINE BROMIDE [Concomitant]
     Active Substance: BUTYLSCOPOLAMINE BROMIDE
     Indication: Ill-defined disorder
     Dosage: ONE TO BE TAKEN THREE TIMES A DAY (8AM, 12NOON..
     Route: 065
     Dates: start: 20211103
  14. POLYETHYLENE GLYCOL 3350\POTASSIUM CHLORIDE\SODIUM BICARBONATE\SODIUM [Concomitant]
     Active Substance: POLYETHYLENE GLYCOL 3350\POTASSIUM CHLORIDE\SODIUM BICARBONATE\SODIUM CHLORIDE
     Indication: Ill-defined disorder
     Dosage: ONE OR TWO SACHETS TO BE TAKEN TWICE A DAY AS N..
     Route: 065
     Dates: start: 20211103
  15. LORAZEPAM [Concomitant]
     Active Substance: LORAZEPAM
     Indication: Ill-defined disorder
     Dosage: TAKE HALF A TABLET AT 10PM
     Route: 065
     Dates: start: 20211103
  16. MIRTAZAPINE [Concomitant]
     Active Substance: MIRTAZAPINE
     Indication: Ill-defined disorder
     Dosage: TAKE 1 IN THE MORNING
     Route: 065
     Dates: start: 20211103
  17. CHLORHEXIDINE HYDROCHLORIDE\NEOMYCIN SULFATE [Concomitant]
     Active Substance: CHLORHEXIDINE HYDROCHLORIDE\NEOMYCIN SULFATE
     Indication: Ill-defined disorder
     Dosage: APPLY THREE TIMES A DAY
     Route: 065
     Dates: start: 20220419, end: 20220426
  18. OMEPRAZOLE [Concomitant]
     Active Substance: OMEPRAZOLE
     Indication: Ill-defined disorder
     Dosage: TAKE ONE DAILY AT 8AM FOR ABDOMINAL PAINS
     Route: 065
     Dates: start: 20211103
  19. OPTICROM [Concomitant]
     Active Substance: CROMOLYN SODIUM
     Indication: Ill-defined disorder
     Dosage: PUT ONE DROP INTO EACH EYE FOUR TIMES A DAY USE.
     Route: 065
     Dates: start: 20211103
  20. ACETAMINOPHEN [Concomitant]
     Active Substance: ACETAMINOPHEN
     Indication: Ill-defined disorder
     Dosage: TAKE ONE OR TWO FOUR TIMES A DAY WHEN REQUIRED
     Route: 065
     Dates: start: 20211103
  21. PROMETHAZINE HYDROCHLORIDE [Concomitant]
     Active Substance: PROMETHAZINE HYDROCHLORIDE
     Indication: Ill-defined disorder
     Dosage: TAKE ONE TABLET UP TO A MAXIMUM OF TWICE A DAY
     Route: 065
     Dates: start: 20211103
  22. SENNA [Concomitant]
     Active Substance: SENNA LEAF\SENNOSIDES\SENNOSIDES A AND B
     Indication: Ill-defined disorder
     Dosage: TWO TO BE TAKEN AT NIGHT AT 10PM
     Route: 065
     Dates: start: 20211103
  23. HERBALS\KARAYA GUM [Concomitant]
     Active Substance: HERBALS\KARAYA GUM
     Indication: Ill-defined disorder
     Dosage: ONE TO BE TAKEN TWICE A DAY AS NEEDED FOR CONST..
     Route: 065
     Dates: start: 20211103
  24. THIAMINE [Concomitant]
     Active Substance: THIAMINE
     Indication: Ill-defined disorder
     Dosage: ONE TO BE TAKEN TWICE DAY (8AM AND 6PM)
     Route: 065
     Dates: start: 20211103
  25. TRIMETHOPRIM [Concomitant]
     Active Substance: TRIMETHOPRIM
     Indication: Ill-defined disorder
     Dosage: TAKE ONE TWICE DAILY FOR 3 DAYS, TO TREAT URINE..
     Route: 065
     Dates: start: 20220503, end: 20220506
  26. CARBOMER [Concomitant]
     Active Substance: CARBOMER
     Indication: Ill-defined disorder
     Dosage: ONE DROP AS NEEDED FOR DRY EYES AS RECOMMENDED
     Route: 065
     Dates: start: 20211103
  27. ZOPICLONE [Concomitant]
     Active Substance: ZOPICLONE
     Indication: Ill-defined disorder
     Dosage: TAKE ONE TABLET WHEN NECESSARY FOR SLEEP, NO MO..
     Route: 065
     Dates: start: 20220411, end: 20220509

REACTIONS (1)
  - Nausea [Unknown]
